FAERS Safety Report 4603946-4 (Version None)
Quarter: 2005Q1

REPORT INFORMATION
  Report Type: 
  Country: None (occurrence: None)
  Receive Date: 20050310
  Receipt Date: 20050218
  Transmission Date: 20050727
  Serious: Yes (Hospitalization)
  Sender: FDA-Public Use
  Company Number: JP-GLAXOSMITHKLINE-B0372393A

PATIENT
  Age: 68 Year
  Sex: Female
  Weight: 47.5 kg

DRUGS (10)
  1. VALTREX [Suspect]
     Indication: HERPES ZOSTER OTICUS
     Dosage: 1000MG PER DAY
     Route: 048
     Dates: start: 20050217, end: 20050217
  2. LASIX [Concomitant]
     Indication: RENAL FAILURE CHRONIC
     Dosage: 40MG PER DAY
     Route: 048
  3. NORVASC [Concomitant]
     Indication: HYPERTENSION
     Route: 048
  4. CARDENALIN [Concomitant]
     Indication: HYPERTENSION
     Dosage: 4MG PER DAY
     Route: 048
  5. ZESTRIL [Concomitant]
     Indication: HYPERTENSION
     Dosage: 20MG PER DAY
     Route: 048
  6. DIOVAN [Concomitant]
     Indication: HYPERTENSION
     Dosage: 160MG PER DAY
     Route: 048
  7. CALTAN [Concomitant]
     Indication: HYPERPHOSPHATAEMIA
     Dosage: 1500MG PER DAY
     Route: 048
  8. RENAGEL [Concomitant]
     Indication: HYPERPHOSPHATAEMIA
     Dosage: 1500MG PER DAY
     Route: 048
  9. TAKEPRON [Concomitant]
     Indication: GASTRIC ULCER
     Dosage: 15MG PER DAY
     Route: 048
     Dates: start: 20050215
  10. RISUMIC [Concomitant]
     Indication: PROCEDURAL HYPOTENSION
     Dosage: 10MG PER DAY
     Route: 048

REACTIONS (4)
  - EATING DISORDER [None]
  - HAEMODIALYSIS [None]
  - MALAISE [None]
  - THERAPY NON-RESPONDER [None]
